FAERS Safety Report 9613070 (Version 2)
Quarter: 2013Q4

REPORT INFORMATION
  Report Type: Spontaneous
  Country: US (occurrence: US)
  Receive Date: 20131010
  Receipt Date: 20131010
  Transmission Date: 20140711
  Serious: Yes (Other)
  Sender: FDA-Public Use
  Company Number: PHEH2013US016896

PATIENT
  Age: 61 Year
  Sex: Female
  Weight: 63.95 kg

DRUGS (6)
  1. RECLAST [Suspect]
     Indication: OSTEOPOROSIS
     Dosage: UNK
     Route: 042
     Dates: start: 20130807
  2. PATANOL [Concomitant]
     Dosage: 1 GTT BOTH EYES EVERY 12 HRS
  3. ZANTAC [Concomitant]
     Dosage: 1 DF, BID
     Route: 048
  4. FLONASE [Concomitant]
     Dosage: 0.05 MG, (AS DIRECTED)
     Route: 045
  5. ALLEGRA [Concomitant]
     Dosage: 180 MG, QD
     Route: 048
  6. ATENOLOL [Concomitant]
     Dosage: 25 MG, QD
     Route: 048

REACTIONS (3)
  - Heart rate increased [Unknown]
  - Palpitations [Recovered/Resolved]
  - Pyrexia [Unknown]
